FAERS Safety Report 7725758-5 (Version None)
Quarter: 2011Q3

REPORT INFORMATION
  Report Type: 
  Country: None (occurrence: None)
  Receive Date: 20110830
  Receipt Date: 20110819
  Transmission Date: 20111222
  Serious: Yes (Life-Threatening)
  Sender: FDA-Public Use
  Company Number: 20110604

PATIENT
  Age: 8 Year
  Sex: Male

DRUGS (2)
  1. NICARDIPINE HYDROCHLORIDE [Suspect]
     Indication: HYPERTENSION
     Dosage: 1 UG/KG/MIN.; 2/5 MG/ML, INTRAVENOUS DRIP
     Route: 041
  2. CHEMOTHERAPY [Concomitant]

REACTIONS (3)
  - OFF LABEL USE [None]
  - ANGIOEDEMA [None]
  - UPPER AIRWAY OBSTRUCTION [None]
